FAERS Safety Report 4286644-9 (Version None)
Quarter: 2004Q1

REPORT INFORMATION
  Report Type: 
  Country: None (occurrence: None)
  Receive Date: 20040206
  Receipt Date: 20031215
  Transmission Date: 20041129
  Serious: Yes (Hospitalization)
  Sender: FDA-Public Use
  Company Number: WAES 0312GBR00147

PATIENT
  Age: 85 Year
  Sex: Male

DRUGS (5)
  1. ATENOLOL [Concomitant]
     Dates: start: 20000101
  2. PROSCAR [Suspect]
     Indication: PROSTATIC DISORDER
     Route: 048
     Dates: start: 20001201, end: 20021201
  3. PROSCAR [Suspect]
     Route: 048
     Dates: start: 20031001
  4. LISINOPRIL [Concomitant]
     Dates: start: 20030101
  5. TAMSULOSIN HYDROCHLORIDE [Concomitant]
     Dates: start: 20030101

REACTIONS (1)
  - MONARTHRITIS [None]
